FAERS Safety Report 5343736-0 (Version None)
Quarter: 2007Q2

REPORT INFORMATION
  Report Type: 
  Country: None (occurrence: None)
  Receive Date: 20070531
  Receipt Date: 20070531
  Transmission Date: 20071010
  Serious: No
  Sender: FDA-Public Use
  Company Number: None

PATIENT
  Sex: Female
  Weight: 61.2356 kg

DRUGS (2)
  1. WELLBUTRIN XL [Suspect]
     Indication: ANXIETY
     Dosage: 300MG 1 QD
     Dates: start: 20061013, end: 20061114
  2. WELLBUTRIN XL [Suspect]
     Indication: DEPRESSION
     Dosage: 300MG 1 QD
     Dates: start: 20061013, end: 20061114

REACTIONS (2)
  - EUPHORIC MOOD [None]
  - PRURITUS GENERALISED [None]
